FAERS Safety Report 7458088 (Version 2)
Quarter: 2013Q1

REPORT INFORMATION
  Report Type: Spontaneous
  Country: US (occurrence: US)
  Receive Date: 20100708
  Receipt Date: 20130207
  Transmission Date: 20140127
  Serious: Yes (Hospitalization)
  Sender: FDA-Public Use
  Company Number: US-ALEXION-A201000761

PATIENT
  Age: 24 Year
  Sex: Female

DRUGS (10)
  1. SOLIRIS 300MG [Suspect]
     Indication: PAROXYSMAL NOCTURNAL HAEMOGLOBINURIA
     Dosage: 600 MG, QW
     Route: 042
     Dates: start: 20100514
  2. SOLIRIS 300MG [Suspect]
     Dosage: 900 MG, Q2W
     Route: 042
  3. CYCLOSPORIN [Concomitant]
     Dosage: 300 MG, BID
  4. CEFTRIAXONE [Concomitant]
     Dosage: 2 G, BID
  5. BACTRIM DS [Concomitant]
     Dosage: UNK UNK, QD
  6. MORPHINE [Concomitant]
     Dosage: UNK UNK, PRN
  7. ZOFRAN                             /00955301/ [Concomitant]
     Dosage: UNK UNK, PRN
  8. TYLENOL /00020001/ [Concomitant]
     Dosage: UNK UNK, PRN
  9. BENADRYL                           /00000402/ [Concomitant]
     Dosage: UNK UNK, PRN
  10. LORATADINE [Concomitant]
     Dosage: UNK

REACTIONS (3)
  - Meningitis meningococcal [Recovering/Resolving]
  - Meningococcal sepsis [Recovering/Resolving]
  - Haemolysis [Unknown]
